FAERS Safety Report 9717046 (Version 1)
Quarter: 2013Q4

REPORT INFORMATION
  Report Type: Spontaneous
  Country: US (occurrence: None)
  Receive Date: 20131125
  Receipt Date: 20131125
  Transmission Date: 20140711
  Serious: Yes (Hospitalization)
  Sender: FDA-Public Use
  Company Number: 2013P1021130

PATIENT
  Sex: Male

DRUGS (2)
  1. DIAZEPAM [Suspect]
     Indication: STATUS EPILEPTICUS
     Dosage: 1` MG/KG; X1
  2. CLONAZEPAM [Concomitant]

REACTIONS (4)
  - Pneumonia aspiration [None]
  - Fatigue [None]
  - Mental status changes [None]
  - Respiratory depression [None]
